FAERS Safety Report 18252817 (Version 1)
Quarter: 2020Q3

REPORT INFORMATION
  Report Type: Spontaneous
  Country: SE (occurrence: SE)
  Receive Date: 20200910
  Receipt Date: 20200910
  Transmission Date: 20201103
  Serious: Yes (Hospitalization)
  Sender: FDA-Public Use
  Company Number: SE-ELI_LILLY_AND_COMPANY-SE202009001055

PATIENT
  Age: 69 Year
  Sex: Female

DRUGS (1)
  1. OLUMIANT [Suspect]
     Active Substance: BARICITINIB
     Indication: SJOGREN^S SYNDROME
     Dosage: 2 MG, UNKNOWN
     Route: 065
     Dates: start: 20190911, end: 20200605

REACTIONS (2)
  - Lung neoplasm malignant [Recovered/Resolved]
  - Off label use [Unknown]

NARRATIVE: CASE EVENT DATE: 20190911
